FAERS Safety Report 7814285-2 (Version None)
Quarter: 2011Q4

REPORT INFORMATION
  Report Type: 
  Country: None (occurrence: None)
  Receive Date: 20111011
  Receipt Date: 20110923
  Transmission Date: 20120403
  Serious: Yes (Hospitalization, Other)
  Sender: FDA-Public Use
  Company Number: CIP11000507

PATIENT
  Age: 77 Year
  Sex: Female
  Weight: 75.3 kg

DRUGS (25)
  1. PLAQUENIL [Concomitant]
  2. CENTRUM SILVER [Concomitant]
  3. VITAMIN D [Concomitant]
  4. AVAPRO [Concomitant]
  5. ACTONEL [Suspect]
     Indication: OSTEOPOROSIS
     Dosage: 30 MG, 1/WEEK, ORAL
     Route: 048
     Dates: start: 20020322, end: 20030128
  6. LASIX [Concomitant]
  7. LOVAZA [Concomitant]
  8. AMLODIPINE [Concomitant]
  9. COUMADIN [Concomitant]
  10. CITALOPRAM HYDROBROMIDE [Concomitant]
  11. ADVAIR HFA [Concomitant]
  12. ASPIRIN [Concomitant]
  13. PROAIR HFA [Concomitant]
  14. ZESTRIL [Concomitant]
  15. FOSAMAX [Suspect]
     Indication: OSTEOPOROSIS
     Dosage: 70 MG MONTHLY, ORAL
     Route: 048
     Dates: start: 20100101, end: 20100701
  16. OSCAL [Concomitant]
  17. PRAVACHOL [Concomitant]
  18. GLUCOSAMINE [Concomitant]
  19. ACTONEL [Suspect]
     Indication: OSTEOPOROSIS
     Dosage: 35 MG ONCE WEEKLY, ORAL
     Route: 048
     Dates: start: 20030128, end: 20071201
  20. COLACE (DOCUSATE SODIUM) [Concomitant]
  21. FERROUS SULFATE TAB [Concomitant]
  22. FLEXERIL [Concomitant]
  23. OMEPRAZOLE [Concomitant]
  24. VERAPAMIL [Concomitant]
  25. ZETIA [Concomitant]

REACTIONS (39)
  - COMMINUTED FRACTURE [None]
  - HIP FRACTURE [None]
  - INADEQUATE ANALGESIA [None]
  - CARDIAC FAILURE CONGESTIVE [None]
  - FEMUR FRACTURE [None]
  - BONE METABOLISM DISORDER [None]
  - POST-TRAUMATIC PAIN [None]
  - CHONDROMALACIA [None]
  - TENDONITIS [None]
  - PATHOLOGICAL FRACTURE [None]
  - FALL [None]
  - DYSPHAGIA [None]
  - FRACTURE DISPLACEMENT [None]
  - ARTHRALGIA [None]
  - STRESS ULCER [None]
  - GASTROINTESTINAL HAEMORRHAGE [None]
  - RHABDOMYOLYSIS [None]
  - DEVICE DISLOCATION [None]
  - JOINT SWELLING [None]
  - HYPERKALAEMIA [None]
  - NODAL ARRHYTHMIA [None]
  - HAEMATEMESIS [None]
  - LOSS OF ANATOMICAL ALIGNMENT AFTER FRACTURE REDUCTION [None]
  - MUSCULAR WEAKNESS [None]
  - SOMNAMBULISM [None]
  - HUMERUS FRACTURE [None]
  - PAIN IN EXTREMITY [None]
  - INCISION SITE CELLULITIS [None]
  - POST PROCEDURAL HAEMORRHAGE [None]
  - GAIT DISTURBANCE [None]
  - RESPIRATORY DISORDER [None]
  - INTERNATIONAL NORMALISED RATIO INCREASED [None]
  - WHITE BLOOD CELL COUNT INCREASED [None]
  - OSTEOARTHRITIS [None]
  - RENAL ATROPHY [None]
  - RENAL FAILURE [None]
  - WEIGHT BEARING DIFFICULTY [None]
  - ANAEMIA POSTOPERATIVE [None]
  - INSOMNIA [None]
